FAERS Safety Report 24955295 (Version 1)
Quarter: 2025Q1

REPORT INFORMATION
  Report Type: Spontaneous
  Country: US (occurrence: US)
  Receive Date: 20250211
  Receipt Date: 20250211
  Transmission Date: 20250409
  Serious: No
  Sender: INCYTE
  Company Number: US-INCYTE CORPORATION-2025IN001067

PATIENT

DRUGS (1)
  1. JAKAFI [Suspect]
     Active Substance: RUXOLITINIB
     Indication: Product used for unknown indication
     Dosage: 5 MILLIGRAM, QD
     Route: 048

REACTIONS (7)
  - Abdominal pain upper [Unknown]
  - Defaecation urgency [Unknown]
  - Skin disorder [Unknown]
  - Product dose omission issue [Unknown]
  - Urinary tract infection [Unknown]
  - Diarrhoea [Unknown]
  - Muscle spasms [Unknown]
